FAERS Safety Report 17894931 (Version 1)
Quarter: 2020Q2

REPORT INFORMATION
  Report Type: Spontaneous
  Country: GR (occurrence: GR)
  Receive Date: 20200615
  Receipt Date: 20200615
  Transmission Date: 20200714
  Serious: Yes (Other)
  Sender: FDA-Public Use
  Company Number: GR-TEVA-2020-GR-1247806

PATIENT
  Age: 42 Year
  Sex: Male
  Weight: 75 kg

DRUGS (6)
  1. ASPIRIN 100 MG [Concomitant]
     Active Substance: ASPIRIN
  2. ROSUVASTATIN. [Suspect]
     Active Substance: ROSUVASTATIN
     Dosage: 20 MG
     Route: 048
     Dates: start: 20200325, end: 20200331
  3. ATORVASTATIN [Suspect]
     Active Substance: ATORVASTATIN
     Indication: ACUTE CORONARY SYNDROME
     Dosage: 40 MG
     Route: 048
     Dates: start: 20181204, end: 20181211
  4. METOPROLOL 100 MG [Concomitant]
     Active Substance: METOPROLOL
     Dosage: 0.25 DOSAGE FORMS
  5. CLOPIDOGREL [Concomitant]
     Active Substance: CLOPIDOGREL BISULFATE
  6. ESOMEPRAZOLE 40 MG [Concomitant]
     Active Substance: ESOMEPRAZOLE

REACTIONS (2)
  - Hypertransaminasaemia [Recovered/Resolved]
  - Drug intolerance [Recovered/Resolved]

NARRATIVE: CASE EVENT DATE: 20181211
